FAERS Safety Report 6510919-3 (Version None)
Quarter: 2009Q4

REPORT INFORMATION
  Report Type: 
  Country: None (occurrence: None)
  Receive Date: 20091222
  Receipt Date: 20090202
  Transmission Date: 20100525
  Serious: No
  Sender: FDA-Public Use
  Company Number: US-ASTRAZENECA-2009UW03031

PATIENT
  Age: 78 Year
  Sex: Female
  Weight: 62.1 kg

DRUGS (5)
  1. CRESTOR [Suspect]
     Indication: PROTEIN TOTAL NORMAL
     Route: 048
     Dates: start: 20090122
  2. COUMADIN [Concomitant]
  3. BONIVA [Concomitant]
  4. LEVOXAL [Concomitant]
  5. ESTRODIAL [Concomitant]

REACTIONS (3)
  - ABDOMINAL PAIN [None]
  - ANORECTAL DISCOMFORT [None]
  - DYSPEPSIA [None]
